FAERS Safety Report 20085581 (Version 5)
Quarter: 2023Q1

REPORT INFORMATION
  Report Type: Spontaneous
  Country: FR (occurrence: FR)
  Receive Date: 20211118
  Receipt Date: 20230120
  Transmission Date: 20230417
  Serious: Yes (Death, Hospitalization, Other)
  Sender: FDA-Public Use
  Company Number: FR-SA-2021SA284542

PATIENT

DRUGS (19)
  1. MYCOPHENOLATE MOFETIL [Suspect]
     Active Substance: MYCOPHENOLATE MOFETIL
     Indication: Prophylaxis against graft versus host disease
     Dosage: UNK (FROM DAY +5)
     Route: 065
  2. MYCOPHENOLATE MOFETIL [Suspect]
     Active Substance: MYCOPHENOLATE MOFETIL
     Indication: Allogenic stem cell transplantation
  3. FLUDARABINE [Suspect]
     Active Substance: FLUDARABINE PHOSPHATE
     Indication: Bone marrow conditioning regimen
     Dosage: 30 MG/SQ. METER, QD (30 MG/M2/DAY
     Route: 065
  4. CYTARABINE [Suspect]
     Active Substance: CYTARABINE
     Indication: Bone marrow conditioning regimen
     Dosage: (2000 MG/M2/DAY FROM -13 TO -10)
     Route: 065
  5. CYTARABINE [Suspect]
     Active Substance: CYTARABINE
     Indication: Chemotherapy
  6. BUSULFAN [Suspect]
     Active Substance: BUSULFAN
     Indication: Bone marrow conditioning regimen
     Dosage: 3.2 MILLIGRAM/KILOGRAM, QD (3.2 MG/KG/DAY FROM DAY -4 TO -3)
     Route: 042
  7. CYCLOSPORINE [Suspect]
     Active Substance: CYCLOSPORINE
     Indication: Prophylaxis against graft versus host disease
     Dosage: (FROM DAY +5),POST-TRANSPLANTATION
     Route: 065
  8. CYCLOSPORINE [Suspect]
     Active Substance: CYCLOSPORINE
     Indication: Allogenic stem cell transplantation
  9. CYCLOPHOSPHAMIDE [Suspect]
     Active Substance: CYCLOPHOSPHAMIDE
     Indication: Prophylaxis against graft versus host disease
     Dosage: 50 MILLIGRAM/KILOGRAM, QD (50 MG/KG/DAY FROM DAY +3 TO +4)
     Route: 065
  10. THYMOCYTE IMMUNE GLOBULIN NOS [Suspect]
     Active Substance: THYMOCYTE IMMUNE GLOBULIN NOS
     Indication: Bone marrow conditioning regimen
     Dosage: 2.5 MG/KG, QD (2.5 MG/KG, QD (DAY -3 TO DAY -2)
     Route: 065
  11. AMSACRINE [Suspect]
     Active Substance: AMSACRINE
     Indication: Bone marrow conditioning regimen
     Dosage: 100 MILLIGRAM/SQ. METER, QD (100 MG/M2
     Route: 065
  12. MELPHALAN [Suspect]
     Active Substance: MELPHALAN
     Indication: Bone marrow conditioning regimen
     Dosage: 140 MG/SQ. METER QD, ON DAY -6
     Route: 065
  13. FLUCONAZOLE [Concomitant]
     Active Substance: FLUCONAZOLE
     Indication: Antifungal prophylaxis
     Dosage: UNK
     Route: 065
  14. FLUCONAZOLE [Concomitant]
     Active Substance: FLUCONAZOLE
     Indication: Infection prophylaxis
  15. SULFAMETHOXAZOLE\TRIMETHOPRIM [Concomitant]
     Active Substance: SULFAMETHOXAZOLE\TRIMETHOPRIM
     Indication: Antifungal prophylaxis
     Dosage: UNK
     Route: 065
  16. SULFAMETHOXAZOLE\TRIMETHOPRIM [Concomitant]
     Active Substance: SULFAMETHOXAZOLE\TRIMETHOPRIM
     Indication: Infection prophylaxis
  17. ACYCLOVIR [Concomitant]
     Active Substance: ACYCLOVIR
     Indication: Antiviral prophylaxis
     Dosage: UNK
     Route: 065
  18. ACYCLOVIR [Concomitant]
     Active Substance: ACYCLOVIR
     Indication: Infection prophylaxis
  19. MESNA [Concomitant]
     Active Substance: MESNA
     Indication: Prophylaxis
     Dosage: UNK
     Route: 042

REACTIONS (6)
  - Multiple organ dysfunction syndrome [Fatal]
  - Toxoplasmosis [Fatal]
  - Septic shock [Fatal]
  - Cerebral toxoplasmosis [Fatal]
  - Off label use [Unknown]
  - Product use in unapproved indication [Unknown]
